FAERS Safety Report 24967439 (Version 1)
Quarter: 2025Q1

REPORT INFORMATION
  Report Type: Spontaneous
  Country: DE (occurrence: DE)
  Receive Date: 20250214
  Receipt Date: 20250214
  Transmission Date: 20250409
  Serious: No
  Sender: ALKEM
  Company Number: DE-ALKEM LABORATORIES LIMITED-DE-ALKEM-2024-26579

PATIENT
  Age: 44 Year
  Sex: Female
  Weight: 103 kg

DRUGS (16)
  1. FINGOLIMOD [Suspect]
     Active Substance: FINGOLIMOD
     Indication: Relapsing-remitting multiple sclerosis
     Route: 065
     Dates: start: 20210730
  2. AMANTADINE [Concomitant]
     Active Substance: AMANTADINE
     Indication: Fatigue
     Dosage: 100 MILLIGRAM, QD
     Route: 048
  3. BACLOFEN [Concomitant]
     Active Substance: BACLOFEN
     Indication: Muscle spasticity
     Route: 048
     Dates: end: 20220907
  4. BACLOFEN [Concomitant]
     Active Substance: BACLOFEN
     Dosage: 2.5 MILLIGRAM, QD
     Route: 048
     Dates: start: 20231204
  5. BACLOFEN [Concomitant]
     Active Substance: BACLOFEN
     Dosage: 10 MILLIGRAM, QD
     Route: 048
     Dates: start: 20220908, end: 20231203
  6. Comirnaty [Concomitant]
     Indication: Prophylaxis
     Route: 030
     Dates: start: 20210526, end: 20210526
  7. Comirnaty [Concomitant]
     Route: 030
     Dates: start: 20210505, end: 20210505
  8. Comirnaty [Concomitant]
     Route: 030
     Dates: start: 20211203, end: 20211203
  9. DICLOFENAC [Concomitant]
     Active Substance: DICLOFENAC
     Indication: Headache
     Route: 048
     Dates: start: 20231204, end: 20240319
  10. CHOLECALCIFEROL [Concomitant]
     Active Substance: CHOLECALCIFEROL
     Indication: Prophylaxis
     Dosage: 2000 INTERNATIONAL UNIT, ONCE WEEKLY
     Route: 048
     Dates: start: 20240612
  11. CHOLECALCIFEROL [Concomitant]
     Active Substance: CHOLECALCIFEROL
     Dosage: 2000 INTERNATIONAL UNIT, ONCE WEEKLY
     Route: 048
     Dates: end: 20220907
  12. PANTOPRAZOLE [Concomitant]
     Active Substance: PANTOPRAZOLE
     Indication: Prophylaxis
     Route: 048
     Dates: start: 20231204, end: 20240319
  13. NABIXIMOLS [Concomitant]
     Active Substance: NABIXIMOLS
     Indication: Muscle spasticity
     Route: 048
     Dates: start: 20220302, end: 20220312
  14. METHYLPREDNISOLONE [Concomitant]
     Active Substance: METHYLPREDNISOLONE
     Indication: Multiple sclerosis relapse
     Dosage: 1 GRAM, QD
     Route: 042
     Dates: start: 20211213, end: 20211215
  15. METHYLPREDNISOLONE [Concomitant]
     Active Substance: METHYLPREDNISOLONE
     Dosage: 2 GRAM, QD
     Route: 042
     Dates: start: 20220307, end: 20220311
  16. VITAMIN D [Concomitant]
     Active Substance: VITAMIN D NOS
     Indication: Prophylaxis
     Route: 048
     Dates: start: 20220309, end: 20221207

REACTIONS (1)
  - Lymphopenia [Not Recovered/Not Resolved]

NARRATIVE: CASE EVENT DATE: 20240911
